FAERS Safety Report 6106430-4 (Version None)
Quarter: 2009Q1

REPORT INFORMATION
  Report Type: 
  Country: None (occurrence: None)
  Receive Date: 20090306
  Receipt Date: 20090302
  Transmission Date: 20090719
  Serious: Yes (Hospitalization)
  Sender: FDA-Public Use
  Company Number: DE-GENENTECH-276922

PATIENT
  Sex: Male

DRUGS (2)
  1. RAPTIVA [Suspect]
     Indication: PSORIASIS
     Dosage: 0.6 ML, SINGLE
     Route: 058
     Dates: start: 20080527, end: 20080527
  2. RAPTIVA [Suspect]
     Dosage: 0.9 ML, 1/WEEK
     Route: 058
     Dates: end: 20090122

REACTIONS (3)
  - ANAPHYLACTIC REACTION [None]
  - DYSPNOEA [None]
  - LIP SWELLING [None]
